FAERS Safety Report 5612309-4 (Version None)
Quarter: 2008Q1

REPORT INFORMATION
  Report Type: 
  Country: None (occurrence: None)
  Receive Date: 20080204
  Receipt Date: 20080129
  Transmission Date: 20080703
  Serious: Yes (Other)
  Sender: FDA-Public Use
  Company Number: US-ASTRAZENECA-2007UW22374

PATIENT
  Age: 67 Year
  Sex: Female

DRUGS (3)
  1. ARIMIDEX [Suspect]
     Route: 048
     Dates: start: 20070201
  2. IMIPRAMINE [Concomitant]
  3. IBUPROFEN [Concomitant]

REACTIONS (2)
  - FIBROMYALGIA [None]
  - LIMB DISCOMFORT [None]
